FAERS Safety Report 7288136-1 (Version None)
Quarter: 2011Q1

REPORT INFORMATION
  Report Type: 
  Country: None (occurrence: None)
  Receive Date: 20110208
  Receipt Date: 20110208
  Transmission Date: 20110831
  Serious: Yes (Death)
  Sender: FDA-Public Use
  Company Number: None

PATIENT
  Age: 67 Year
  Sex: Male
  Weight: 107.95 kg

DRUGS (2)
  1. ALBUMIN (HUMAN) [Suspect]
     Indication: SURGERY
     Dosage: 100 GM OTHER IV
     Route: 042
     Dates: start: 20110122, end: 20110122
  2. ALBUMIN (HUMAN) [Suspect]
     Indication: CENTRAL VENOUS PRESSURE
     Dosage: 100 GM OTHER IV
     Route: 042
     Dates: start: 20110122, end: 20110122

REACTIONS (3)
  - GENERAL PHYSICAL HEALTH DETERIORATION [None]
  - INCORRECT DOSE ADMINISTERED [None]
  - MEDICATION ERROR [None]
